FAERS Safety Report 16683541 (Version 1)
Quarter: 2019Q3

REPORT INFORMATION
  Report Type: Spontaneous
  Country: US (occurrence: US)
  Receive Date: 20190808
  Receipt Date: 20190808
  Transmission Date: 20191004
  Serious: No
  Sender: FDA-Public Use
  Company Number: US-ALLERGAN-1912172US

PATIENT
  Age: 76 Year
  Sex: Male

DRUGS (6)
  1. ANDROGEL [Concomitant]
     Active Substance: TESTOSTERONE
     Indication: PROSTATIC DISORDER
     Dosage: UNK
     Route: 061
     Dates: start: 201902
  2. DOXAZOSIN [Concomitant]
     Active Substance: DOXAZOSIN MESYLATE
     Indication: HYPERTENSION
     Dosage: 4 MG, QD
     Route: 048
  3. LISINIPRIL [Concomitant]
     Active Substance: LISINOPRIL
     Indication: HYPERTENSION
     Dosage: 20 MG, QAM
     Route: 048
  4. VITAMINS [Concomitant]
     Active Substance: VITAMINS
     Indication: SUPPLEMENTATION THERAPY
     Dosage: UNK, QD
     Route: 048
  5. ANDRODERM [Suspect]
     Active Substance: TESTOSTERONE
     Indication: PROSTATIC DISORDER
     Dosage: 1 DF, QD
     Route: 061
     Dates: start: 201902, end: 201903
  6. FISH OIL [Concomitant]
     Active Substance: FISH OIL
     Indication: SUPPLEMENTATION THERAPY
     Dosage: UNK, QD
     Route: 048

REACTIONS (2)
  - Pruritus generalised [Recovered/Resolved]
  - Off label use [Unknown]

NARRATIVE: CASE EVENT DATE: 201902
